FAERS Safety Report 23613778 (Version 1)
Quarter: 2024Q1

REPORT INFORMATION
  Report Type: Spontaneous
  Country: IT (occurrence: IT)
  Receive Date: 20240310
  Receipt Date: 20240310
  Transmission Date: 20240410
  Serious: Yes (Hospitalization)
  Sender: FDA-Public Use
  Company Number: IT-MINISAL02-972258

PATIENT
  Age: 71 Year
  Sex: Female

DRUGS (4)
  1. DULOXETINE [Suspect]
     Active Substance: DULOXETINE
     Indication: Depression
     Dosage: UNK (USUAL THERAPY: 60 MG/DIED DOSE TAKEN FOR SELF-HARM PURPOSES: 12 TABLETS OF 60 MG)
     Route: 048
  2. TRAMADOL HYDROCHLORIDE [Suspect]
     Active Substance: TRAMADOL HYDROCHLORIDE
     Indication: Pain
     Dosage: UNK (USUAL THERAPY: 40 GTT/DIEDOSE TAKEN FOR SELF-HARM PURPOSES: 1 BOTTLE OF DROPS)
     Route: 048
  3. LYRICA [Suspect]
     Active Substance: PREGABALIN
     Indication: Neuralgia
     Dosage: UNK (USUAL THERAPY: 75 MG/DIED DOSE TAKEN FOR SELF-HARM PURPOSES: 8 TABLETS OF 75 MG)
     Route: 048
  4. RIVOTRIL [Suspect]
     Active Substance: CLONAZEPAM
     Indication: Product used for unknown indication
     Dosage: UNK (USUAL THERAPY: 10 GTT/DIEDOSE TAKEN FOR SELF-HARM PURPOSES: 1 BOTTLE OF DROPS)
     Route: 048

REACTIONS (1)
  - Sopor [Recovered/Resolved]

NARRATIVE: CASE EVENT DATE: 20240218
